FAERS Safety Report 5022205-1 (Version None)
Quarter: 2006Q2

REPORT INFORMATION
  Report Type: 
  Country: None (occurrence: None)
  Receive Date: 20060501
  Receipt Date: 20060227
  Transmission Date: 20061013
  Serious: No
  Sender: FDA-Public Use
  Company Number: 2006PV009380

PATIENT
  Age: 60 Year
  Sex: Male
  Weight: 122.4712 kg

DRUGS (5)
  1. SYMLIN [Suspect]
     Indication: DIABETES MELLITUS NON-INSULIN-DEPENDENT
     Dosage: 60 MCG;BID;SC
     Route: 058
     Dates: start: 20060222, end: 20060224
  2. GLYBURIDE [Concomitant]
  3. METFORMIN HCL [Concomitant]
  4. NOVOLIN 70/30 [Concomitant]
  5. CELEXA [Concomitant]

REACTIONS (6)
  - ANXIETY [None]
  - EPISTAXIS [None]
  - FATIGUE [None]
  - HEADACHE [None]
  - NAUSEA [None]
  - PANIC REACTION [None]
